FAERS Safety Report 9233394 (Version 1)
Quarter: 2013Q2

REPORT INFORMATION
  Report Type: Spontaneous
  Country: US (occurrence: US)
  Receive Date: 20130416
  Receipt Date: 20130416
  Transmission Date: 20140414
  Serious: No
  Sender: FDA-Public Use
  Company Number: US-BANPHARM-20130970

PATIENT
  Age: 83 Year
  Sex: Male
  Weight: 98.43 kg

DRUGS (3)
  1. ALEVE LIQUID GELS 220MG [Suspect]
     Indication: BACK PAIN
     Dosage: 1 DF, PRN,
     Route: 048
     Dates: start: 201101
  2. ALEVE SMOOTH GELS [Suspect]
     Indication: BACK PAIN
     Dosage: BID,
     Route: 048
     Dates: start: 201101
  3. 325 MG GENUINE REGIMEN BAYER [Concomitant]
     Indication: BACK PAIN
     Dosage: 2 DF, ONCE,
     Route: 048
     Dates: start: 20120509, end: 20120509

REACTIONS (3)
  - Dizziness [Recovered/Resolved]
  - Drug ineffective [Unknown]
  - Incorrect drug administration duration [Unknown]
